FAERS Safety Report 8964822 (Version 5)
Quarter: 2014Q2

REPORT INFORMATION
  Report Type: Spontaneous
  Country: US (occurrence: US)
  Receive Date: 20121213
  Receipt Date: 20140623
  Transmission Date: 20141212
  Serious: Yes (Hospitalization, Other)
  Sender: FDA-Public Use
  Company Number: US-009507513-1212USA005207

PATIENT
  Sex: Female
  Weight: 63.95 kg

DRUGS (2)
  1. FOSAMAX [Suspect]
     Indication: OSTEOPOROSIS PROPHYLAXIS
     Dosage: 70 MG, QW
     Route: 048
     Dates: start: 20040707, end: 201101
  2. ALENDRONATE SODIUM [Suspect]
     Dosage: 70 MG, QW
     Dates: start: 20080922, end: 20101024

REACTIONS (29)
  - Femur fracture [Recovering/Resolving]
  - Intramedullary rod insertion [Unknown]
  - Cholecystectomy [Unknown]
  - Malignant melanoma [Unknown]
  - Cancer surgery [Unknown]
  - Femur fracture [Unknown]
  - Osteoporosis [Unknown]
  - Facial bones fracture [Unknown]
  - Bronchitis [Unknown]
  - Atrial fibrillation [Unknown]
  - Productive cough [Unknown]
  - Nasal congestion [Unknown]
  - Chronic obstructive pulmonary disease [Not Recovered/Not Resolved]
  - Rotator cuff syndrome [Unknown]
  - Essential hypertension [Unknown]
  - Blood cholesterol increased [Unknown]
  - Psoriasis [Unknown]
  - Kyphosis [Unknown]
  - Cardiac disorder [Unknown]
  - Hysterectomy [Unknown]
  - Arthropathy [Unknown]
  - Intervertebral disc degeneration [Unknown]
  - Lumbar vertebral fracture [Unknown]
  - Spondylolisthesis [Unknown]
  - Scoliosis [Unknown]
  - Fall [Unknown]
  - Rheumatoid arthritis [Unknown]
  - Asthma [Unknown]
  - Constipation [Unknown]
